FAERS Safety Report 26014206 (Version 1)
Quarter: 2025Q4

REPORT INFORMATION
  Report Type: Spontaneous
  Country: IL (occurrence: IL)
  Receive Date: 20251108
  Receipt Date: 20251108
  Transmission Date: 20260118
  Serious: Yes (Other)
  Sender: GLAXOSMITHKLINE
  Company Number: IL-GSK-IL2025EME119641

PATIENT
  Age: 63 Year
  Sex: Female

DRUGS (2)
  1. JEMPERLI [Suspect]
     Active Substance: DOSTARLIMAB-GXLY
     Indication: Rectal cancer
     Dosage: 500 MG, Q3W, 4 TRIWEEKLY
  2. OPDIVO [Suspect]
     Active Substance: NIVOLUMAB
     Indication: Product used for unknown indication
     Dosage: UNK, 3 MONTHLY

REACTIONS (2)
  - Rectal cancer recurrent [Unknown]
  - Product use in unapproved indication [Unknown]
